FAERS Safety Report 7849416-1 (Version None)
Quarter: 2011Q4

REPORT INFORMATION
  Report Type: 
  Country: None (occurrence: None)
  Receive Date: 20111024
  Receipt Date: 20111011
  Transmission Date: 20120403
  Serious: Yes (Hospitalization, Other)
  Sender: FDA-Public Use
  Company Number: ADR-2011-11325

PATIENT
  Age: 14 Year
  Sex: Female

DRUGS (2)
  1. LIORESAL [Suspect]
     Indication: CEREBRAL PALSY
     Dosage: 398.2 MCG. DAILY, INTRA
  2. LIORESAL [Suspect]
     Indication: MUSCLE SPASTICITY
     Dosage: 398.2 MCG. DAILY, INTRA

REACTIONS (6)
  - SKIN DISCOLOURATION [None]
  - PRURITUS [None]
  - COLD SWEAT [None]
  - HYPERHIDROSIS [None]
  - MUSCLE SPASTICITY [None]
  - DRUG WITHDRAWAL SYNDROME [None]
